FAERS Safety Report 13709300 (Version 2)
Quarter: 2018Q4

REPORT INFORMATION
  Report Type: Spontaneous
  Country: US (occurrence: US)
  Receive Date: 20170703
  Receipt Date: 20181019
  Transmission Date: 20190204
  Serious: Yes (Hospitalization)
  Sender: FDA-Public Use
  Company Number: US-B.I. PHARMACEUTICALS,INC./RIDGEFIELD-2017-BI-036723

PATIENT
  Age: 67 Year
  Sex: Female
  Weight: 65.77 kg

DRUGS (2)
  1. PRADAXA [Suspect]
     Active Substance: DABIGATRAN ETEXILATE MESYLATE
     Route: 048
     Dates: start: 20120918, end: 20130723
  2. PRADAXA [Suspect]
     Active Substance: DABIGATRAN ETEXILATE MESYLATE
     Indication: ATRIAL FIBRILLATION
     Route: 048
     Dates: start: 201104

REACTIONS (4)
  - Gastrointestinal haemorrhage [Unknown]
  - Vaginal haemorrhage [Unknown]
  - Renal haemorrhage [Unknown]
  - Blood urine present [Unknown]

NARRATIVE: CASE EVENT DATE: 20130101
